FAERS Safety Report 7104950-7 (Version None)
Quarter: 2010Q4

REPORT INFORMATION
  Report Type: 
  Country: None (occurrence: None)
  Receive Date: 20101116
  Receipt Date: 20101103
  Transmission Date: 20110411
  Serious: Yes (Hospitalization)
  Sender: FDA-Public Use
  Company Number: PHFR2010GB05176

PATIENT
  Sex: Male

DRUGS (1)
  1. CLOZARIL [Suspect]
     Indication: SCHIZOPHRENIA
     Dosage: UNK
     Dates: start: 20070208

REACTIONS (4)
  - CONTUSION [None]
  - ROAD TRAFFIC ACCIDENT [None]
  - SURGERY [None]
  - UPPER LIMB FRACTURE [None]
